FAERS Safety Report 21977415 (Version 1)
Quarter: 2023Q1

REPORT INFORMATION
  Report Type: Spontaneous
  Country: US (occurrence: None)
  Receive Date: 20230208
  Receipt Date: 20230208
  Transmission Date: 20230417
  Serious: Yes (Death)
  Sender: FDA-Public Use
  Company Number: None

PATIENT
  Sex: Female

DRUGS (13)
  1. DALFAMPRIDINE [Suspect]
     Active Substance: DALFAMPRIDINE
     Indication: Multiple sclerosis
     Dosage: FREQUENCY : EVERY 12 HOURS;?
     Route: 048
     Dates: start: 20221011, end: 20221201
  2. DALFAMPRIDINE [Suspect]
     Active Substance: DALFAMPRIDINE
     Dosage: FREQUENCY : EVERY 12 HOURS;?
     Route: 048
  3. AMPYRA [Concomitant]
     Active Substance: DALFAMPRIDINE
  4. BACLOFEN [Concomitant]
     Active Substance: BACLOFEN
  5. BUPROPION [Concomitant]
     Active Substance: BUPROPION
  6. CLONAZEPAM [Concomitant]
     Active Substance: CLONAZEPAM
  7. DULOXETINE [Concomitant]
     Active Substance: DULOXETINE
  8. LIDOCAINE [Concomitant]
     Active Substance: LIDOCAINE
  9. MAYZENT [Concomitant]
     Active Substance: SIPONIMOD
  10. NURTEC ODT [Concomitant]
     Active Substance: RIMEGEPANT SULFATE
  11. PREGABALIN [Concomitant]
     Active Substance: PREGABALIN
  12. PROPRANOLOL [Concomitant]
     Active Substance: PROPRANOLOL HYDROCHLORIDE
  13. TOLTERODINE [Concomitant]
     Active Substance: TOLTERODINE

REACTIONS (1)
  - Death [None]
